FAERS Safety Report 5751779-8 (Version None)
Quarter: 2008Q2

REPORT INFORMATION
  Report Type: 
  Country: None (occurrence: None)
  Receive Date: 20080529
  Receipt Date: 20080519
  Transmission Date: 20081010
  Serious: No
  Sender: FDA-Public Use
  Company Number: US-JNJFOC-20080504606

PATIENT
  Sex: Male
  Weight: 104.33 kg

DRUGS (6)
  1. RISPERDAL [Suspect]
     Indication: BIPOLAR DISORDER
     Dosage: 2MG IN AM; 4MG IN PM
     Route: 048
  2. INVEGA [Suspect]
     Indication: BIPOLAR DISORDER
     Route: 048
  3. LITHIUM CARBONATE [Concomitant]
  4. LITHIUM CARBONATE [Concomitant]
     Indication: BIPOLAR DISORDER
  5. PROPRANOLOL [Concomitant]
     Indication: BIPOLAR DISORDER
  6. WELLBUTRIN [Concomitant]
     Indication: BIPOLAR DISORDER

REACTIONS (2)
  - PARANOIA [None]
  - WEIGHT INCREASED [None]
